FAERS Safety Report 23555488 (Version 1)
Quarter: 2024Q1

REPORT INFORMATION
  Report Type: Spontaneous
  Country: US (occurrence: US)
  Receive Date: 20240222
  Receipt Date: 20240222
  Transmission Date: 20240410
  Serious: Yes (Hospitalization, Other)
  Sender: FDA-Public Use
  Company Number: US-LANTHEUS-LMI-2023-01115

PATIENT
  Sex: Male

DRUGS (1)
  1. DEFINITY [Suspect]
     Active Substance: PERFLUTREN
     Indication: Product used for unknown indication
     Dosage: 5 MILLILITRE (DILUTION DETAILS WERE NOT PROVIDED)
     Dates: start: 20230911, end: 20230911

REACTIONS (5)
  - Respiratory arrest [Recovered/Resolved]
  - Loss of consciousness [Recovered/Resolved]
  - Confusional state [Unknown]
  - Altered state of consciousness [Unknown]
  - Cough [Unknown]

NARRATIVE: CASE EVENT DATE: 20230911
